FAERS Safety Report 5353641-1 (Version None)
Quarter: 2007Q2

REPORT INFORMATION
  Report Type: 
  Country: None (occurrence: None)
  Receive Date: 20070608
  Receipt Date: 20070529
  Transmission Date: 20071010
  Serious: Yes (Hospitalization, Disabling)
  Sender: FDA-Public Use
  Company Number: 2007SP010530

PATIENT
  Age: 5 Year
  Sex: Female

DRUGS (2)
  1. TEMODAL [Suspect]
     Indication: NEOPLASM
     Dates: end: 20070401
  2. ANTI EGF ANTIBODY [Concomitant]

REACTIONS (3)
  - HEMIPLEGIA [None]
  - THROMBOCYTOPENIA [None]
  - TUMOUR HAEMORRHAGE [None]
